FAERS Safety Report 5302350-3 (Version None)
Quarter: 2007Q1

REPORT INFORMATION
  Report Type: 
  Country: None (occurrence: None)
  Receive Date: 20070201
  Receipt Date: 20061211
  Transmission Date: 20070707
  Serious: No
  Sender: FDA-Public Use
  Company Number: 2006PV026746

PATIENT
  Age: 78 Year
  Sex: Female
  Weight: 96.1626 kg

DRUGS (16)
  1. BYETTA [Suspect]
     Indication: DIABETES MELLITUS NON-INSULIN-DEPENDENT
     Dosage: SEE IMAGE
     Route: 058
     Dates: start: 20061107, end: 20061210
  2. BYETTA [Suspect]
     Indication: DIABETES MELLITUS NON-INSULIN-DEPENDENT
     Dosage: SEE IMAGE
     Route: 058
     Dates: start: 20061211
  3. METFORMIN HCL [Concomitant]
  4. AVANDIA [Concomitant]
  5. LUTEIN [Concomitant]
  6. FLAX SEED OIL [Concomitant]
  7. FISH OIL [Concomitant]
  8. DETROL [Concomitant]
  9. LOSTATIN [Concomitant]
  10. LISINOPRIL [Concomitant]
  11. ASPIRIN [Concomitant]
  12. VITAMIN CAP [Concomitant]
  13. E CAPS [Concomitant]
  14. CHROMIUM [Concomitant]
  15. CALCIUM CHLORIDE [Concomitant]
  16. FIBER [Concomitant]

REACTIONS (2)
  - INJECTION SITE PAIN [None]
  - WEIGHT INCREASED [None]
